FAERS Safety Report 5047444-5 (Version None)
Quarter: 2006Q3

REPORT INFORMATION
  Report Type: 
  Country: None (occurrence: None)
  Receive Date: 20060711
  Receipt Date: 20060704
  Transmission Date: 20061208
  Serious: Yes (Other)
  Sender: FDA-Public Use
  Company Number: PHBS2006BR10095

PATIENT
  Age: 37 Year
  Sex: Male
  Weight: 73 kg

DRUGS (2)
  1. TEGRETOL [Suspect]
     Dosage: 200 MG, BID
     Route: 048
  2. LITHIUM CARBONATE [Concomitant]
     Indication: BIPOLAR DISORDER
     Dosage: 90 MG/DAY
     Route: 065

REACTIONS (4)
  - ACNE [None]
  - FURUNCLE [None]
  - RASH MACULAR [None]
  - SKIN EXFOLIATION [None]
